FAERS Safety Report 23694653 (Version 1)
Quarter: 2024Q2

REPORT INFORMATION
  Report Type: Spontaneous
  Country: ES (occurrence: ES)
  Receive Date: 20240402
  Receipt Date: 20240402
  Transmission Date: 20240715
  Serious: Yes (Hospitalization)
  Sender: FDA-Public Use
  Company Number: ES-STADA-01221212

PATIENT
  Age: 71 Year
  Sex: Male

DRUGS (7)
  1. ZEMPLAR [Suspect]
     Active Substance: PARICALCITOL
     Indication: IgA nephropathy
     Route: 048
  2. SECUKINUMAB [Suspect]
     Active Substance: SECUKINUMAB
     Indication: IgA nephropathy
     Dosage: WEEK 0, INDUCTION PHASE
     Route: 058
  3. SECUKINUMAB [Suspect]
     Active Substance: SECUKINUMAB
     Indication: IgA nephropathy
     Dosage: WEEK 1, INDUCTION PHASE
     Route: 058
  4. SECUKINUMAB [Suspect]
     Active Substance: SECUKINUMAB
     Indication: IgA nephropathy
     Dosage: WEEK 2, INDUCTION PHASE
     Route: 058
  5. SECUKINUMAB [Suspect]
     Active Substance: SECUKINUMAB
     Indication: IgA nephropathy
     Dosage: WEEK 3, INDUCTION PHASE
     Route: 058
  6. SECUKINUMAB [Suspect]
     Active Substance: SECUKINUMAB
     Indication: IgA nephropathy
     Dosage: WEEK 4, INDUCTION PHASE
     Route: 058
  7. SECUKINUMAB [Suspect]
     Active Substance: SECUKINUMAB
     Indication: IgA nephropathy
     Dosage: MAINTENANCE PHASE
     Route: 058

REACTIONS (1)
  - Herpes zoster infection neurological [Recovered/Resolved]
